FAERS Safety Report 23716314 (Version 2)
Quarter: 2024Q3

REPORT INFORMATION
  Report Type: Report from Study
  Country: US (occurrence: US)
  Receive Date: 20240408
  Receipt Date: 20240705
  Transmission Date: 20241017
  Serious: Yes (Other)
  Sender: ABBVIE
  Company Number: US-ABBVIE-5708572

PATIENT
  Sex: Male

DRUGS (1)
  1. LUPRON [Suspect]
     Active Substance: LEUPROLIDE ACETATE
     Indication: Product used for unknown indication
     Route: 065
     Dates: start: 20240123

REACTIONS (4)
  - Neoplasm malignant [Unknown]
  - Stress [Unknown]
  - Neuropathy peripheral [Unknown]
  - Bone disorder [Unknown]

NARRATIVE: CASE EVENT DATE: 20240101
